FAERS Safety Report 15906584 (Version 2)
Quarter: 2019Q1

REPORT INFORMATION
  Report Type: Spontaneous
  Country: US (occurrence: US)
  Receive Date: 20190204
  Receipt Date: 20190222
  Transmission Date: 20190417
  Serious: No
  Sender: FDA-Public Use
  Company Number: US-SA-2019SA027382

PATIENT
  Age: 51 Year
  Sex: Male

DRUGS (10)
  1. OLUX [Concomitant]
     Active Substance: CLOBETASOL PROPIONATE
     Indication: PRURITUS
     Dosage: 2 DF 2-3 WEEKS
     Dates: start: 2011
  2. PROTOPIC [Concomitant]
     Active Substance: TACROLIMUS
     Indication: ECZEMA
     Dosage: 2 DF, QD NECK
     Dates: start: 2011
  3. SERNIVO [Concomitant]
     Active Substance: BETAMETHASONE DIPROPIONATE
  4. PANTOPRAZOLE [Concomitant]
     Active Substance: PANTOPRAZOLE
     Indication: GASTROOESOPHAGEAL REFLUX DISEASE
     Dosage: 40 MG, QD
     Dates: start: 2013
  5. SILDENAFIL CITRATE. [Concomitant]
     Active Substance: SILDENAFIL CITRATE
  6. TESTOSTERONE. [Concomitant]
     Active Substance: TESTOSTERONE
     Dosage: 40.5 MG, QD
     Dates: start: 2018
  7. DUPIXENT [Suspect]
     Active Substance: DUPILUMAB
     Indication: DERMATITIS ATOPIC
     Dosage: 300 MG, QOW
     Route: 058
     Dates: start: 20181025, end: 20190104
  8. CELECOXIB. [Concomitant]
     Active Substance: CELECOXIB
     Indication: BACK PAIN
     Dosage: 200 MG, PRN
  9. CLOBETASOL [Concomitant]
     Active Substance: CLOBETASOL
  10. OXYCODONE AND ACETAMINOPHEN [Concomitant]
     Active Substance: ACETAMINOPHEN\OXYCODONE HYDROCHLORIDE
     Indication: BACK PAIN
     Dosage: 5.325 UNK, PRN

REACTIONS (2)
  - Eczema [Recovered/Resolved]
  - Drug ineffective [Unknown]

NARRATIVE: CASE EVENT DATE: 201812
